FAERS Safety Report 13962542 (Version 1)
Quarter: 2017Q3

REPORT INFORMATION
  Report Type: Other
  Country: ES (occurrence: ES)
  Receive Date: 20170913
  Receipt Date: 20170913
  Transmission Date: 20171128
  Serious: Yes (Hospitalization, Other)
  Sender: FDA-Public Use
  Company Number: ES-DEXPHARM-20171250

PATIENT
  Age: 78 Year
  Sex: Female

DRUGS (8)
  1. OMEPRAZOLE. [Suspect]
     Active Substance: OMEPRAZOLE
     Dosage: 20MG/24 HOURS
  2. METOPROLOL. [Suspect]
     Active Substance: METOPROLOL
     Dosage: 15 MG/12 HOURS
  3. TRAMADOL. [Suspect]
     Active Substance: TRAMADOL
     Dosage: 100MG/8 HOURS
  4. ENALAPRIL [Suspect]
     Active Substance: ENALAPRIL
     Dosage: 20MG/24 HOURS
  5. TIAMAZOLE [Suspect]
     Active Substance: METHIMAZOLE
     Dosage: 10MG/24 HOURS
  6. ATORVASTATIN [Suspect]
     Active Substance: ATORVASTATIN
     Dosage: 40MG/24 HOURS
  7. APIXABAN [Suspect]
     Active Substance: APIXABAN
     Dosage: 5MG/12 HOURS
  8. ALPRAZOLAM. [Suspect]
     Active Substance: ALPRAZOLAM
     Dosage: 0.5MG/24 HOURS

REACTIONS (4)
  - Confusional state [Unknown]
  - Pain [Unknown]
  - Pneumonia [Unknown]
  - Neuralgia [Unknown]
